FAERS Safety Report 13553614 (Version 1)
Quarter: 2017Q2

REPORT INFORMATION
  Report Type: Spontaneous
  Country: IT (occurrence: IT)
  Receive Date: 20170517
  Receipt Date: 20170517
  Transmission Date: 20170830
  Serious: No
  Sender: FDA-Public Use
  Company Number: IT-FRESENIUS KABI-FK201703876

PATIENT
  Age: 21 Year
  Sex: Female

DRUGS (1)
  1. POTASSIUM CHLORIDE (MANUFACTURER UNKNOWN) [Suspect]
     Active Substance: POTASSIUM CHLORIDE
     Indication: SUICIDE ATTEMPT
     Route: 048
     Dates: start: 20170227, end: 20170227

REACTIONS (2)
  - Suicide attempt [Unknown]
  - Intentional self-injury [Unknown]

NARRATIVE: CASE EVENT DATE: 20170227
